FAERS Safety Report 22635390 (Version 2)
Quarter: 2023Q2

REPORT INFORMATION
  Report Type: Spontaneous
  Country: US (occurrence: US)
  Receive Date: 20230623
  Receipt Date: 20230628
  Transmission Date: 20230722
  Serious: Yes (Other)
  Sender: FDA-Public Use
  Company Number: US-PFIZER INC-PV202300110121

PATIENT
  Age: 48 Year
  Sex: Female

DRUGS (1)
  1. ERYTHROMYCIN [Suspect]
     Active Substance: ERYTHROMYCIN
     Indication: Upper respiratory tract infection
     Dosage: 250 MG, 4X/DAY
     Route: 048

REACTIONS (1)
  - Primary biliary cholangitis [Recovering/Resolving]
